FAERS Safety Report 10068276 (Version 2)
Quarter: 2014Q2

REPORT INFORMATION
  Report Type: Spontaneous
  Country: US (occurrence: US)
  Receive Date: 20140409
  Receipt Date: 20140415
  Transmission Date: 20141212
  Serious: No
  Sender: FDA-Public Use
  Company Number: US-PFIZER INC-2014098183

PATIENT
  Age: 6 Year
  Sex: Male

DRUGS (2)
  1. ZOLOFT [Suspect]
     Indication: ANXIETY
     Dosage: UNK
     Route: 048
  2. ZOLOFT [Suspect]
     Indication: AFFECTIVE DISORDER

REACTIONS (1)
  - Drug ineffective [Unknown]
